FAERS Safety Report 19737470 (Version 2)
Quarter: 2021Q3

REPORT INFORMATION
  Report Type: Spontaneous
  Country: US (occurrence: US)
  Receive Date: 20210824
  Receipt Date: 20210915
  Transmission Date: 20211014
  Serious: No
  Sender: FDA-Public Use
  Company Number: US-GILEAD-2021-0545347

PATIENT
  Age: 46 Year
  Sex: Male

DRUGS (5)
  1. TRUVADA [Suspect]
     Active Substance: EMTRICITABINE\TENOFOVIR DISOPROXIL FUMARATE
     Indication: HIGH RISK SEXUAL BEHAVIOUR
     Dosage: 1 DOSAGE FORM, QD
     Route: 048
  2. VITAMIN A AND D [COLECALCIFEROL;RETINOL] [Concomitant]
  3. LIPITOR [Concomitant]
     Active Substance: ATORVASTATIN CALCIUM
  4. VITAMINS NOS [Concomitant]
     Active Substance: VITAMINS
  5. VYVANSE [Concomitant]
     Active Substance: LISDEXAMFETAMINE DIMESYLATE

REACTIONS (1)
  - Product use issue [Not Recovered/Not Resolved]
